FAERS Safety Report 5786838-7 (Version None)
Quarter: 2008Q2

REPORT INFORMATION
  Report Type: 
  Country: None (occurrence: None)
  Receive Date: 20080620
  Receipt Date: 20080612
  Transmission Date: 20081010
  Serious: Yes (Other)
  Sender: FDA-Public Use
  Company Number: 2007334518

PATIENT
  Sex: Female

DRUGS (8)
  1. ZYRTEC [Suspect]
     Indication: RHINITIS ALLERGIC
     Dosage: 10 MG TABLETS DAILY AT BEDTIME, UNKNOWN
     Dates: start: 20000101, end: 20070901
  2. ALL OTHER THERAPUETIC PRODUCTS (ALL OTHER THERAPEUTIC PRODUCTS) [Concomitant]
  3. ZETIA [Concomitant]
  4. LEXAPRO [Concomitant]
  5. DITROPAN XL [Concomitant]
  6. ACIPHEX [Concomitant]
  7. ASPIRIN [Concomitant]
  8. NOSONEX (MOMETASONE FUROATE) [Concomitant]

REACTIONS (4)
  - DERMATITIS [None]
  - RASH [None]
  - REACTION TO DRUG EXCIPIENTS [None]
  - SKIN LESION [None]
